FAERS Safety Report 5840202-0 (Version None)
Quarter: 2008Q3

REPORT INFORMATION
  Report Type: 
  Country: None (occurrence: None)
  Receive Date: 20080807
  Receipt Date: 20080807
  Transmission Date: 20090109
  Serious: Yes (Hospitalization)
  Sender: FDA-Public Use
  Company Number: None

PATIENT
  Sex: Female
  Weight: 76.82 kg

DRUGS (3)
  1. CARBOPLATIN [Suspect]
     Dosage: 390 MG
  2. TAXOL [Suspect]
     Dosage: 296 MG
  3. NEULASTA [Suspect]
     Dosage: 6 MG

REACTIONS (5)
  - BLOOD ALBUMIN DECREASED [None]
  - BLOOD ALKALINE PHOSPHATASE INCREASED [None]
  - BLOOD SODIUM DECREASED [None]
  - NAUSEA [None]
  - VOMITING [None]
